FAERS Safety Report 13776777 (Version 2)
Quarter: 2018Q4

REPORT INFORMATION
  Report Type: Spontaneous
  Country: US (occurrence: US)
  Receive Date: 20170720
  Receipt Date: 20181112
  Transmission Date: 20190204
  Serious: No
  Sender: FDA-Public Use
  Company Number: US-LUNDBECK-DKLU2033009

PATIENT
  Age: 73 Year
  Sex: Male

DRUGS (2)
  1. NORTHERA [Suspect]
     Active Substance: DROXIDOPA
     Indication: POLYNEUROPATHY
  2. NORTHERA [Suspect]
     Active Substance: DROXIDOPA
     Indication: RILEY-DAY SYNDROME
     Route: 048
     Dates: start: 20160503

REACTIONS (1)
  - Drug ineffective [Unknown]

NARRATIVE: CASE EVENT DATE: 20170616
